FAERS Safety Report 4461353-1 (Version None)
Quarter: 2004Q3

REPORT INFORMATION
  Report Type: 
  Country: None (occurrence: None)
  Receive Date: 20040928
  Receipt Date: 20040914
  Transmission Date: 20050211
  Serious: Yes (Other)
  Sender: FDA-Public Use
  Company Number: DE-AMGEN-UK091371

PATIENT
  Sex: Male
  Weight: 66 kg

DRUGS (6)
  1. ARANESP [Suspect]
     Indication: RENAL FAILURE CHRONIC
     Route: 058
     Dates: start: 20031023
  2. CELLCEPT [Suspect]
     Dates: start: 20040601
  3. LASIX [Concomitant]
     Dates: start: 19970101
  4. SANDIMMUNE [Concomitant]
     Dates: start: 19970101
  5. CLONIDINE HCL [Concomitant]
     Dates: start: 19970101
  6. PRAVACHOL [Concomitant]
     Dates: start: 19970101

REACTIONS (3)
  - ACIDOSIS [None]
  - ANAEMIA [None]
  - IRON DEFICIENCY [None]
